FAERS Safety Report 7952964-7 (Version None)
Quarter: 2011Q4

REPORT INFORMATION
  Report Type: 
  Country: None (occurrence: None)
  Receive Date: 20111201
  Receipt Date: 20111121
  Transmission Date: 20120403
  Serious: Yes (Hospitalization, Other)
  Sender: FDA-Public Use
  Company Number: PHHY2011BR102834

PATIENT
  Sex: Female

DRUGS (3)
  1. BONIVA [Concomitant]
     Indication: OSTEOPOROSIS
     Dosage: 1 DF, MONTHLY
  2. EXFORGE [Suspect]
     Indication: BLOOD PRESSURE
     Dosage: 1 DF (160/5 MG) DAILY
  3. EXFORGE [Suspect]
     Dosage: 0.5 DF, (160/5 MG) DAILY

REACTIONS (6)
  - OSTEOPOROSIS [None]
  - COUGH [None]
  - HYPERSENSITIVITY [None]
  - MENTAL DISORDER [None]
  - RHINITIS [None]
  - PLATELET COUNT DECREASED [None]
